FAERS Safety Report 9596400 (Version 1)
Quarter: 2013Q4

REPORT INFORMATION
  Report Type: Spontaneous
  Country: US (occurrence: US)
  Receive Date: 20131004
  Receipt Date: 20131004
  Transmission Date: 20140711
  Serious: No
  Sender: FDA-Public Use
  Company Number: US-AMGEN-USASP2012066851

PATIENT
  Age: 55 Year
  Sex: Female
  Weight: 154 kg

DRUGS (5)
  1. ENBREL [Suspect]
     Indication: PSORIATIC ARTHROPATHY
     Dosage: 50 MG, 2 TIMES/WK
     Route: 058
  2. HUMIRA [Concomitant]
     Dosage: 40 MG/0.8SC
  3. FISH OIL [Concomitant]
     Dosage: UNK
     Route: 048
  4. GLUCOSAMINE + CHONDROITIN          /01430901/ [Concomitant]
     Dosage: UNK
     Route: 048
  5. MULTICAPS [Concomitant]
     Dosage: UNK
     Route: 048

REACTIONS (2)
  - Drug ineffective [Unknown]
  - Fatigue [Unknown]
